FAERS Safety Report 4716075-6 (Version None)
Quarter: 2005Q3

REPORT INFORMATION
  Report Type: 
  Country: None (occurrence: None)
  Receive Date: 20050718
  Receipt Date: 20050711
  Transmission Date: 20060218
  Serious: Yes (Death)
  Sender: FDA-Public Use
  Company Number: US-JNJFOC-20050702129

PATIENT
  Age: 4 Month
  Sex: Male

DRUGS (2)
  1. TYLENOL [Suspect]
     Dates: end: 20050710
  2. TYLENOL [Suspect]
     Dates: end: 20050710

REACTIONS (2)
  - DEATH [None]
  - LOSS OF CONSCIOUSNESS [None]
